FAERS Safety Report 10286181 (Version 2)
Quarter: 2014Q3

REPORT INFORMATION
  Report Type: Spontaneous
  Country: GB (occurrence: None)
  Receive Date: 20140703
  Receipt Date: 20140801
  Transmission Date: 20150326
  Serious: Yes (Hospitalization, Other)
  Sender: FDA-Public Use
  Company Number: ABR_01714_2014

PATIENT
  Sex: Female

DRUGS (3)
  1. ERYTHROMYCIN (ERYTHROMYCIN) [Suspect]
     Active Substance: ERYTHROMYCIN
     Indication: INFECTION
     Dosage: 250 MG, FREQUENCY UNKNOWN?
     Dates: start: 20120717, end: 20120728
  2. CHLORPHENAMINE [Suspect]
     Active Substance: CHLORPHENIRAMINE MALEATE
     Indication: INFECTION
     Dosage: 4 MG, FREQUENCY UNKNOWN
     Dates: start: 20120717, end: 20120728
  3. CLARITHROMYCIN (CLARITHROMYCIN) [Suspect]
     Active Substance: CLARITHROMYCIN
     Indication: INFECTION
     Dosage: 500 MG, FREQUENCY UNKNOWN?
     Dates: start: 20120717, end: 20120728

REACTIONS (5)
  - Malaise [None]
  - Pyrexia [None]
  - Abdominal discomfort [None]
  - Gastroenteritis [None]
  - Weight decreased [None]

NARRATIVE: CASE EVENT DATE: 20120719
